FAERS Safety Report 23034353 (Version 1)
Quarter: 2023Q4

REPORT INFORMATION
  Report Type: Spontaneous
  Country: US (occurrence: US)
  Receive Date: 20231005
  Receipt Date: 20231005
  Transmission Date: 20240110
  Serious: Yes (Hospitalization)
  Sender: FDA-Public Use
  Company Number: US-JNJFOC-20230959824

PATIENT
  Age: 61 Year
  Sex: Female

DRUGS (5)
  1. DIPHENHYDRAMINE HYDROCHLORIDE [Suspect]
     Active Substance: DIPHENHYDRAMINE HYDROCHLORIDE
     Indication: Product used for unknown indication
     Route: 065
  2. DICYCLOMINE [Suspect]
     Active Substance: DICYCLOMINE HYDROCHLORIDE
     Indication: Product used for unknown indication
     Route: 065
  3. ONDANSETRON [Suspect]
     Active Substance: ONDANSETRON
     Indication: Product used for unknown indication
     Route: 065
  4. NAPROXEN [Suspect]
     Active Substance: NAPROXEN
     Indication: Product used for unknown indication
     Route: 065
  5. METFORMIN [Suspect]
     Active Substance: METFORMIN HYDROCHLORIDE
     Indication: Product used for unknown indication
     Route: 065

REACTIONS (21)
  - Suicide attempt [Unknown]
  - Intentional overdose [Unknown]
  - Coma scale abnormal [Recovering/Resolving]
  - Mental status changes [Recovering/Resolving]
  - Skin warm [Recovering/Resolving]
  - Respiratory rate increased [Recovering/Resolving]
  - Blood lactic acid increased [Recovering/Resolving]
  - Electrocardiogram QT prolonged [Recovering/Resolving]
  - Mucosal dryness [Recovering/Resolving]
  - Urinary incontinence [Recovering/Resolving]
  - Blood potassium decreased [Recovering/Resolving]
  - White blood cell count increased [Recovering/Resolving]
  - Loss of consciousness [Recovering/Resolving]
  - Delirium [Recovering/Resolving]
  - Mydriasis [Recovering/Resolving]
  - Flushing [Recovering/Resolving]
  - Gastrointestinal sounds abnormal [Recovering/Resolving]
  - Blood pressure increased [Recovering/Resolving]
  - Urinary retention [Recovering/Resolving]
  - Agitation [Recovering/Resolving]
  - Hallucination [Recovering/Resolving]
